FAERS Safety Report 12263084 (Version 2)
Quarter: 2016Q2

REPORT INFORMATION
  Report Type: Spontaneous
  Country: FR (occurrence: FR)
  Receive Date: 20160413
  Receipt Date: 20160422
  Transmission Date: 20160815
  Serious: Yes (Life-Threatening, Hospitalization)
  Sender: FDA-Public Use
  Company Number: FR-BAYER-2016-065855

PATIENT
  Age: 75 Year
  Sex: Female

DRUGS (4)
  1. CIFLOX [Suspect]
     Active Substance: CIPROFLOXACIN
     Indication: ARTHRITIS BACTERIAL
     Dosage: 500 MG, QD
     Route: 048
     Dates: start: 20140903, end: 20140924
  2. ORBENINE [Concomitant]
     Active Substance: CLOXACILLIN SODIUM
     Dosage: UNK
  3. ORBENINE [Concomitant]
     Active Substance: CLOXACILLIN SODIUM
     Dosage: 1000 MG, TID
     Route: 048
     Dates: start: 20140903, end: 20141010
  4. INEXIUM [Suspect]
     Active Substance: ESOMEPRAZOLE
     Dosage: 20 MG, QD
     Route: 048
     Dates: end: 20140924

REACTIONS (5)
  - Tubulointerstitial nephritis [Recovering/Resolving]
  - Vomiting [Recovered/Resolved]
  - Nausea [Recovered/Resolved]
  - Nephritis allergic [Recovering/Resolving]
  - Decreased appetite [Recovered/Resolved]

NARRATIVE: CASE EVENT DATE: 20140924
